FAERS Safety Report 23190808 (Version 3)
Quarter: 2024Q1

REPORT INFORMATION
  Report Type: Spontaneous
  Country: GB (occurrence: GB)
  Receive Date: 20231116
  Receipt Date: 20240105
  Transmission Date: 20240410
  Serious: Yes (Death, Life-Threatening, Other)
  Sender: FDA-Public Use
  Company Number: None

PATIENT
  Age: 45 Year
  Sex: Male

DRUGS (4)
  1. TEMOZOLOMIDE [Suspect]
     Active Substance: TEMOZOLOMIDE
     Indication: Chemotherapy
     Dosage: 300MG ONCE DAILY (AT 150MG/M2) ORALLY FOR 5 DAYS
     Dates: start: 20231030, end: 20231102
  2. DEXAMETHASONE [Concomitant]
     Active Substance: DEXAMETHASONE
     Dates: start: 20231026, end: 20231102
  3. ONDANSETRON [Concomitant]
     Active Substance: ONDANSETRON
     Dates: start: 20231030, end: 20231102
  4. TEGRETOL [Concomitant]
     Active Substance: CARBAMAZEPINE
     Dates: start: 20090629, end: 20231102

REACTIONS (6)
  - Haemorrhage intracranial [Fatal]
  - Dysarthria [Not Recovered/Not Resolved]
  - Abnormal behaviour [Not Recovered/Not Resolved]
  - Facial paresis [Not Recovered/Not Resolved]
  - Hydrocephalus [Not Recovered/Not Resolved]
  - Cerebral mass effect [Not Recovered/Not Resolved]

NARRATIVE: CASE EVENT DATE: 20231102
